FAERS Safety Report 4925498-1 (Version None)
Quarter: 2006Q1

REPORT INFORMATION
  Report Type: 
  Country: None (occurrence: None)
  Receive Date: 20060228
  Receipt Date: 20050304
  Transmission Date: 20060701
  Serious: No
  Sender: FDA-Public Use
  Company Number: US-GLAXOSMITHKLINE-A0548392A

PATIENT
  Age: 40 Year
  Sex: Female

DRUGS (5)
  1. LAMICTAL [Suspect]
     Indication: BIPOLAR DISORDER
     Dosage: 25MG PER DAY
     Route: 048
     Dates: start: 20050219
  2. EFFEXOR [Concomitant]
  3. KLONOPIN [Concomitant]
  4. PROVIGIL [Concomitant]
  5. SEROQUEL [Concomitant]

REACTIONS (6)
  - FALL [None]
  - HEAD INJURY [None]
  - HEADACHE [None]
  - PHARYNGOLARYNGEAL PAIN [None]
  - PUPILS UNEQUAL [None]
  - PYREXIA [None]
